FAERS Safety Report 8729728 (Version 2)
Quarter: 2015Q2

REPORT INFORMATION
  Report Type: Report from Study
  Country: US (occurrence: US)
  Receive Date: 20120817
  Receipt Date: 20150407
  Transmission Date: 20150821
  Serious: Yes (Other)
  Sender: FDA-Public Use
  Company Number: US-ROCHE-1101616

PATIENT
  Sex: Male

DRUGS (7)
  1. ACTIVASE [Suspect]
     Active Substance: ALTEPLASE
     Dosage: 35CC/HR
     Route: 042
  2. ACTIVASE [Suspect]
     Active Substance: ALTEPLASE
     Route: 042
  3. HEPARIN [Concomitant]
     Active Substance: HEPARIN SODIUM
     Dosage: 7100 UNITS
     Route: 042
  4. HUMULIN NOS [Concomitant]
     Active Substance: INSULIN HUMAN
     Dosage: 50 UNITS
     Route: 065
  5. ASPIRIN. [Concomitant]
     Active Substance: ASPIRIN
     Route: 065
  6. ACTIVASE [Suspect]
     Active Substance: ALTEPLASE
     Indication: ACUTE MYOCARDIAL INFARCTION
     Route: 042
     Dates: start: 19940610
  7. ACTIVASE [Suspect]
     Active Substance: ALTEPLASE
     Dosage: 100CC/ML
     Route: 042
     Dates: start: 19940610

REACTIONS (7)
  - Ventricular extrasystoles [Unknown]
  - Electrocardiogram ST segment elevation [Unknown]
  - Anxiety [Unknown]
  - Chest pain [Unknown]
  - Cardiac flutter [Unknown]
  - Sinus tachycardia [Unknown]
  - Musculoskeletal pain [Unknown]
